FAERS Safety Report 5342576-6 (Version None)
Quarter: 2007Q2

REPORT INFORMATION
  Report Type: 
  Country: None (occurrence: None)
  Receive Date: 20070601
  Receipt Date: 20070111
  Transmission Date: 20071010
  Serious: No
  Sender: FDA-Public Use
  Company Number: A0635344A

PATIENT
  Age: 6 Year
  Sex: Female

DRUGS (2)
  1. AUGMENTIN ES-600 [Suspect]
     Indication: DRUG USE FOR UNKNOWN INDICATION
     Dosage: 1.5TSP TWICE PER DAY
     Route: 048
     Dates: start: 20070110
  2. NO CONCURRENT MEDICATION [Concomitant]

REACTIONS (1)
  - CHROMATURIA [None]
